FAERS Safety Report 23758932 (Version 1)
Quarter: 2024Q2

REPORT INFORMATION
  Report Type: Spontaneous
  Country: US (occurrence: None)
  Receive Date: 20240418
  Receipt Date: 20240418
  Transmission Date: 20240716
  Serious: No
  Sender: FDA-Public Use
  Company Number: US-ROCHE-3333591

PATIENT

DRUGS (4)
  1. AVASTIN [Suspect]
     Active Substance: BEVACIZUMAB
     Indication: Product used for unknown indication
     Route: 065
     Dates: start: 20221020, end: 20221228
  2. CAPECITABINE\OXALIPLATIN [Suspect]
     Active Substance: CAPECITABINE\OXALIPLATIN
     Indication: Product used for unknown indication
     Route: 065
     Dates: start: 20221020, end: 20221228
  3. CARBOPLATIN [Concomitant]
     Active Substance: CARBOPLATIN
  4. TAXOL [Concomitant]
     Active Substance: PACLITAXEL
     Dates: start: 20230202, end: 20230406

REACTIONS (1)
  - Pelvic mass [Unknown]

NARRATIVE: CASE EVENT DATE: 20221230
